FAERS Safety Report 4342033-X (Version None)
Quarter: 2004Q1

REPORT INFORMATION
  Report Type: 
  Country: None (occurrence: None)
  Receive Date: 20040329
  Receipt Date: 20031209
  Transmission Date: 20041129
  Serious: No
  Sender: FDA-Public Use
  Company Number: 03P-163-0244374-00

PATIENT
  Age: 57 Year
  Sex: Female
  Weight: 68.0396 kg

DRUGS (7)
  1. HUMIRA [Suspect]
     Indication: RHEUMATOID ARTHRITIS
     Dosage: 40 MG, 1 IN 2 WK, SUBCUTANEOUS
     Route: 058
     Dates: start: 20031205
  2. AMLODIPINE BESYLATE [Concomitant]
  3. METHOTREXATE [Concomitant]
  4. BUCINDOLOL HYDROCHLORIDE [Concomitant]
  5. FOLIC ACID [Concomitant]
  6. CALCIUM [Concomitant]
  7. PYRIDOXINE HYDROCHLORIDE [Concomitant]

REACTIONS (1)
  - HEADACHE [None]
